FAERS Safety Report 4269956-4 (Version None)
Quarter: 2004Q1

REPORT INFORMATION
  Report Type: 
  Country: None (occurrence: None)
  Receive Date: 20040112
  Receipt Date: 20031230
  Transmission Date: 20041129
  Serious: Yes (Hospitalization)
  Sender: FDA-Public Use
  Company Number: US-JNJFOC-20040100310

PATIENT
  Age: 59 Year
  Sex: Female
  Weight: 73.9363 kg

DRUGS (17)
  1. INFLIXIMAB (INFLIXIMAB, RECOMBINANT) LYOPHILIZED POWDER [Suspect]
     Indication: RHEUMATOID ARTHRITIS
     Dosage: INTRAVENOUS
     Route: 042
     Dates: start: 20001108
  2. METHOTREXATE [Concomitant]
  3. OXYCONTIN [Concomitant]
  4. LORTAB [Concomitant]
  5. ELAVIL [Concomitant]
  6. CELEBREX [Concomitant]
  7. PREDNISONE [Concomitant]
  8. FOLIC ACID [Concomitant]
  9. DITROPAN [Concomitant]
  10. METOPROLOL SUCCINATE [Concomitant]
  11. PREMARIN [Concomitant]
  12. NORVASC [Concomitant]
  13. SYNTHROID [Concomitant]
  14. CALCIUM (CALCIUM) [Concomitant]
  15. PEPCID [Concomitant]
  16. ASPIRIN [Concomitant]
  17. MULTIVITAMIN [Concomitant]

REACTIONS (5)
  - DIARRHOEA [None]
  - GASTROENTERITIS [None]
  - NAUSEA [None]
  - PYREXIA [None]
  - VOMITING [None]
